FAERS Safety Report 4963922-9 (Version None)
Quarter: 2006Q2

REPORT INFORMATION
  Report Type: 
  Country: None (occurrence: None)
  Receive Date: 20060405
  Receipt Date: 20050930
  Transmission Date: 20061013
  Serious: Yes (Hospitalization, Disabling)
  Sender: FDA-Public Use
  Company Number: US-MERCK-0510USA01533

PATIENT
  Age: 42 Year
  Sex: Female
  Weight: 73 kg

DRUGS (1)
  1. VIOXX [Suspect]
     Indication: CONTUSION
     Route: 048
     Dates: end: 20010101

REACTIONS (4)
  - CHEST PAIN [None]
  - DEPRESSION [None]
  - NERVOUSNESS [None]
  - PALPITATIONS [None]
